FAERS Safety Report 6453363-X (Version None)
Quarter: 2009Q4

REPORT INFORMATION
  Report Type: 
  Country: None (occurrence: None)
  Receive Date: 20091123
  Receipt Date: 20091123
  Transmission Date: 20100525
  Serious: Yes (Life-Threatening, Disabling, Other)
  Sender: FDA-Public Use
  Company Number: None

PATIENT
  Age: 65 Year
  Sex: Female
  Weight: 59.8748 kg

DRUGS (1)
  1. ALENDRONATE SODIUM [Suspect]
     Indication: BONE DENSITY DECREASED
     Dosage: 70 MG
     Dates: start: 20090701, end: 20091120

REACTIONS (9)
  - ABDOMINAL DISTENSION [None]
  - CONSTIPATION [None]
  - COUGH [None]
  - DIZZINESS [None]
  - DYSPEPSIA [None]
  - INFLUENZA LIKE ILLNESS [None]
  - JAW DISORDER [None]
  - OESOPHAGEAL STENOSIS [None]
  - TRISMUS [None]
